FAERS Safety Report 7543636-1 (Version None)
Quarter: 2011Q2

REPORT INFORMATION
  Report Type: 
  Country: None (occurrence: None)
  Receive Date: 20110613
  Receipt Date: 20030220
  Transmission Date: 20111010
  Serious: Yes (Death)
  Sender: FDA-Public Use
  Company Number: PHHO2003CO02489

PATIENT
  Sex: Male

DRUGS (1)
  1. FORADIL [Suspect]
     Indication: CHRONIC OBSTRUCTIVE PULMONARY DISEASE
     Dosage: 12 UG, UNK
     Dates: start: 20020201

REACTIONS (1)
  - INFARCTION [None]
